FAERS Safety Report 18735354 (Version 1)
Quarter: 2021Q1

REPORT INFORMATION
  Report Type: Spontaneous
  Country: US (occurrence: US)
  Receive Date: 20210112
  Receipt Date: 20210112
  Transmission Date: 20210419
  Serious: No
  Sender: FDA-Public Use
  Company Number: None

PATIENT
  Age: 58 Year
  Sex: Male

DRUGS (1)
  1. VANCOMYCIN (VANCOMYCIN HCL 100MG/ML INJ) [Suspect]
     Active Substance: VANCOMYCIN HYDROCHLORIDE
     Indication: BACTERAEMIA
     Route: 048
     Dates: start: 20201120, end: 20201202

REACTIONS (13)
  - Acute kidney injury [None]
  - Cardiac failure [None]
  - Blood urea increased [None]
  - Mental status changes [None]
  - Haemodialysis [None]
  - Azotaemia [None]
  - Cardiogenic shock [None]
  - Hypervolaemia [None]
  - Renal tubular necrosis [None]
  - Sepsis [None]
  - Urinary casts [None]
  - Anuria [None]
  - Toxicity to various agents [None]

NARRATIVE: CASE EVENT DATE: 20201122
